FAERS Safety Report 18618625 (Version 1)
Quarter: 2020Q4

REPORT INFORMATION
  Report Type: Spontaneous
  Country: RU (occurrence: RU)
  Receive Date: 20201215
  Receipt Date: 20201215
  Transmission Date: 20210114
  Serious: Yes (Other)
  Sender: FDA-Public Use
  Company Number: NVSC2020RU327713

PATIENT
  Age: 3 Year
  Sex: Male
  Weight: 15 kg

DRUGS (3)
  1. CYTARABINE. [Concomitant]
     Active Substance: CYTARABINE
     Indication: PRODUCT USED FOR UNKNOWN INDICATION
     Dosage: 50 MG (SINGLE DOSE, ENDOLUMBALLY)
     Route: 050
     Dates: start: 20201028, end: 20201028
  2. PREDNISOLON [Concomitant]
     Active Substance: PREDNISOLONE
     Indication: PRODUCT USED FOR UNKNOWN INDICATION
     Dosage: UNK (ENDOLUMBAL ROUTE)
     Route: 050
     Dates: start: 20201028, end: 20201028
  3. METHOTREXATE EBEWE [Suspect]
     Active Substance: METHOTREXATE
     Indication: PRODUCT USED FOR UNKNOWN INDICATION
     Dosage: 12 MG (ENDOLUMBALLY)
     Route: 050
     Dates: start: 20201028, end: 20201028

REACTIONS (1)
  - Arachnoiditis [Recovering/Resolving]

NARRATIVE: CASE EVENT DATE: 20201119
